FAERS Safety Report 4603304-2 (Version None)
Quarter: 2005Q2

REPORT INFORMATION
  Report Type: 
  Country: None (occurrence: None)
  Receive Date: 20050223
  Receipt Date: 20040512
  Transmission Date: 20051028
  Serious: Yes (Other)
  Sender: FDA-Public Use
  Company Number: WAES 0405USA00892

PATIENT
  Age: 50 Year
  Sex: Male

DRUGS (5)
  1. ALDOMET [Suspect]
     Dosage: 500 MG/PO
     Route: 048
  2. ADALAT [Suspect]
     Dosage: 60 MG
  3. MAVIK [Concomitant]
  4. NITROGLYCERIN [Suspect]
     Dosage: PRN/SL
  5. ATENOLOL [Concomitant]

REACTIONS (1)
  - ANGINA PECTORIS [None]
